FAERS Safety Report 5639464-4 (Version None)
Quarter: 2008Q1

REPORT INFORMATION
  Report Type: 
  Country: None (occurrence: None)
  Receive Date: 20080226
  Receipt Date: 20080219
  Transmission Date: 20080703
  Serious: Yes (Other)
  Sender: FDA-Public Use
  Company Number: US-GENENTECH-255889

PATIENT
  Sex: Female
  Weight: 75 kg

DRUGS (5)
  1. XOLAIR [Suspect]
     Indication: ASTHMA
     Dosage: 375 MG, Q2W
     Route: 058
     Dates: start: 20080124
  2. COMPAZINE [Concomitant]
     Indication: DRUG USE FOR UNKNOWN INDICATION
     Dosage: 10 MG, Q6H
     Route: 048
     Dates: start: 20071115
  3. PROTONIX [Concomitant]
     Indication: DRUG USE FOR UNKNOWN INDICATION
     Dosage: 40 MG, TID
     Route: 048
     Dates: start: 20070102
  4. REGLAN [Concomitant]
     Indication: DRUG USE FOR UNKNOWN INDICATION
     Dosage: 10 MG, TID
     Route: 048
     Dates: start: 20071127
  5. ROXICET [Concomitant]
     Indication: DRUG USE FOR UNKNOWN INDICATION
     Dosage: 10 ML, PRN
     Route: 048
     Dates: start: 20071103

REACTIONS (1)
  - ANAPHYLACTIC REACTION [None]
